FAERS Safety Report 13494530 (Version 4)
Quarter: 2017Q3

REPORT INFORMATION
  Report Type: Report from Study
  Country: CA (occurrence: CA)
  Receive Date: 20170428
  Receipt Date: 20170731
  Transmission Date: 20171127
  Serious: Yes (Other)
  Sender: FDA-Public Use
  Company Number: CA-ROCHE-1875790

PATIENT
  Age: 49 Year
  Sex: Female
  Weight: 80 kg

DRUGS (17)
  1. SIMVASTATIN. [Concomitant]
     Active Substance: SIMVASTATIN
  2. FENOFIBRATE. [Concomitant]
     Active Substance: FENOFIBRATE
  3. PREDNISONE. [Suspect]
     Active Substance: PREDNISONE
     Indication: PRODUCT USED FOR UNKNOWN INDICATION
     Route: 065
  4. PREDNISONE. [Suspect]
     Active Substance: PREDNISONE
     Route: 065
     Dates: start: 201611
  5. ACTONEL [Suspect]
     Active Substance: RISEDRONATE SODIUM
     Indication: PRODUCT USED FOR UNKNOWN INDICATION
     Route: 065
     Dates: start: 20170501
  6. METFORMIN [Concomitant]
     Active Substance: METFORMIN HYDROCHLORIDE
  7. ACTEMRA [Suspect]
     Active Substance: TOCILIZUMAB
     Indication: RHEUMATOID ARTHRITIS
     Route: 042
     Dates: start: 20161213, end: 20170530
  8. ZANTAC [Concomitant]
     Active Substance: RANITIDINE HYDROCHLORIDE
  9. PREDNISONE. [Suspect]
     Active Substance: PREDNISONE
     Route: 065
  10. ACTEMRA [Suspect]
     Active Substance: TOCILIZUMAB
     Route: 042
  11. JANUVIA [Concomitant]
     Active Substance: SITAGLIPTIN PHOSPHATE
  12. VITAMIN B12 [Concomitant]
     Active Substance: CYANOCOBALAMIN
  13. CANDESARTAN. [Concomitant]
     Active Substance: CANDESARTAN
  14. ACTEMRA [Suspect]
     Active Substance: TOCILIZUMAB
     Route: 042
     Dates: start: 20170302
  15. PREDNISONE. [Suspect]
     Active Substance: PREDNISONE
     Route: 065
     Dates: start: 201610
  16. HCTZ [Concomitant]
     Active Substance: HYDROCHLOROTHIAZIDE
  17. TRAMACET [Concomitant]
     Active Substance: ACETAMINOPHEN\TRAMADOL
     Route: 065

REACTIONS (15)
  - Dyspnoea [Unknown]
  - Malaise [Not Recovered/Not Resolved]
  - Inflammation [Not Recovered/Not Resolved]
  - Blood glucose increased [Unknown]
  - Nausea [Recovering/Resolving]
  - Headache [Not Recovered/Not Resolved]
  - Ventricular extrasystoles [Unknown]
  - Chills [Recovered/Resolved]
  - Arthralgia [Not Recovered/Not Resolved]
  - Weight increased [Unknown]
  - Vomiting [Recovering/Resolving]
  - Supraventricular extrasystoles [Unknown]
  - Pyrexia [Recovering/Resolving]
  - Drug ineffective [Unknown]
  - Joint stiffness [Not Recovered/Not Resolved]

NARRATIVE: CASE EVENT DATE: 2017
